FAERS Safety Report 20828923 (Version 2)
Quarter: 2022Q3

REPORT INFORMATION
  Report Type: Spontaneous
  Country: US (occurrence: US)
  Receive Date: 20220513
  Receipt Date: 20220911
  Transmission Date: 20221026
  Serious: No
  Sender: FDA-Public Use
  Company Number: US-SA-SAC20220511000839

PATIENT
  Sex: Female

DRUGS (10)
  1. DUPIXENT [Suspect]
     Active Substance: DUPILUMAB
     Indication: Dermatitis atopic
     Dosage: 300 MG, QOW
     Route: 058
     Dates: start: 20200303
  2. AZITHROMYCIN [Concomitant]
     Active Substance: AZITHROMYCIN
  3. IBUPROFEN [Concomitant]
     Active Substance: IBUPROFEN
  4. METHOCARBAMOL [Concomitant]
     Active Substance: METHOCARBAMOL
  5. PREDNISONE [Concomitant]
     Active Substance: PREDNISONE
  6. PROMETHAZINE [Concomitant]
     Active Substance: PROMETHAZINE HYDROCHLORIDE
  7. METHYLERGOMETRINE [Concomitant]
     Active Substance: METHYLERGONOVINE MALEATE
  8. MILT [DIMETINDENE MALEATE;PHENYLEPHRINE] [Concomitant]
  9. MIRENA [Concomitant]
     Active Substance: LEVONORGESTREL
  10. CYCLOBENZAPRINE [Concomitant]
     Active Substance: CYCLOBENZAPRINE

REACTIONS (12)
  - Feeling jittery [Unknown]
  - Dizziness [Unknown]
  - Cold sweat [Unknown]
  - Nausea [Unknown]
  - Vomiting [Unknown]
  - Discomfort [Unknown]
  - Mouth ulceration [Unknown]
  - Nasopharyngitis [Unknown]
  - Eye irritation [Unknown]
  - Oral herpes [Unknown]
  - Dermatitis atopic [Unknown]
  - Rash [Unknown]
